FAERS Safety Report 6048708-9 (Version None)
Quarter: 2009Q1

REPORT INFORMATION
  Report Type: 
  Country: None (occurrence: None)
  Receive Date: 20090123
  Receipt Date: 20090116
  Transmission Date: 20090719
  Serious: Yes (Hospitalization)
  Sender: FDA-Public Use
  Company Number: FR-ROCHE-601311

PATIENT
  Sex: Male

DRUGS (2)
  1. ROCEPHIN [Suspect]
     Indication: INFECTION
     Route: 065
     Dates: end: 20081019
  2. TAVANIC [Suspect]
     Indication: INFECTION
     Route: 065
     Dates: start: 20080930

REACTIONS (4)
  - DERMATITIS EXFOLIATIVE [None]
  - EOSINOPHILIA [None]
  - HYPERSENSITIVITY [None]
  - PRURITUS [None]
